FAERS Safety Report 13971885 (Version 1)
Quarter: 2017Q3

REPORT INFORMATION
  Report Type: Spontaneous
  Country: US (occurrence: US)
  Receive Date: 20170914
  Receipt Date: 20170914
  Transmission Date: 20171128
  Serious: No
  Sender: FDA-Public Use
  Company Number: US-ASTELLAS-2016US036421

PATIENT
  Age: 53 Year
  Sex: Male

DRUGS (3)
  1. XTANDI [Suspect]
     Active Substance: ENZALUTAMIDE
     Dosage: 1 CAPSULE (40 MG), ONCE DAILY
     Route: 065
  2. XTANDI [Suspect]
     Active Substance: ENZALUTAMIDE
     Indication: HORMONE-REFRACTORY PROSTATE CANCER
     Route: 065
  3. XTANDI [Suspect]
     Active Substance: ENZALUTAMIDE
     Dosage: UNK UNK, UNKNOWN FREQ. DOSE DECREASED
     Route: 065

REACTIONS (1)
  - Fatigue [Unknown]

NARRATIVE: CASE EVENT DATE: 20160919
